FAERS Safety Report 17717321 (Version 1)
Quarter: 2020Q2

REPORT INFORMATION
  Report Type: Report from Study
  Country: None (occurrence: US)
  Receive Date: 20200428
  Receipt Date: 20200428
  Transmission Date: 20200714
  Serious: Yes (Other)
  Sender: FDA-Public Use
  Company Number: US-BIOVITRUM-2020US2007

PATIENT
  Sex: Female

DRUGS (1)
  1. KINERET [Suspect]
     Active Substance: ANAKINRA
     Indication: RHEUMATOID ARTHRITIS
     Route: 058
     Dates: start: 20200408

REACTIONS (5)
  - Seasonal allergy [Unknown]
  - Injection site pain [Unknown]
  - Eczema [Unknown]
  - Colitis microscopic [Unknown]
  - Spinal column injury [Unknown]
